FAERS Safety Report 7833634-2 (Version None)
Quarter: 2011Q4

REPORT INFORMATION
  Report Type: 
  Country: None (occurrence: None)
  Receive Date: 20111024
  Receipt Date: 20111020
  Transmission Date: 20120403
  Serious: Yes (Other)
  Sender: FDA-Public Use
  Company Number: DE-BRISTOL-MYERS SQUIBB COMPANY-16183311

PATIENT
  Sex: Female

DRUGS (3)
  1. THYROID TAB [Concomitant]
  2. CLOZAPINE [Suspect]
  3. ABILIFY [Suspect]

REACTIONS (1)
  - DELUSION [None]
